FAERS Safety Report 8415032-6 (Version None)
Quarter: 2012Q2

REPORT INFORMATION
  Report Type: 
  Country: None (occurrence: None)
  Receive Date: 20120606
  Receipt Date: 20120525
  Transmission Date: 20120825
  Serious: Yes (Other)
  Sender: FDA-Public Use
  Company Number: CA-JNJFOC-20120519596

PATIENT
  Sex: Female
  Weight: 54.2 kg

DRUGS (3)
  1. REMICADE [Suspect]
     Route: 042
     Dates: start: 20120401
  2. REMICADE [Suspect]
     Indication: CROHN'S DISEASE
     Dosage: DOSE NUMBER 3
     Route: 042
     Dates: start: 20120524
  3. BIRTH CONTROL PILLS [Concomitant]
     Route: 065

REACTIONS (5)
  - CHEST DISCOMFORT [None]
  - HEART RATE INCREASED [None]
  - VOMITING [None]
  - INFUSION RELATED REACTION [None]
  - THROAT TIGHTNESS [None]
